FAERS Safety Report 21680152 (Version 1)
Quarter: 2022Q4

REPORT INFORMATION
  Report Type: Spontaneous
  Country: GB (occurrence: GB)
  Receive Date: 20221205
  Receipt Date: 20221205
  Transmission Date: 20230112
  Serious: Yes (Other)
  Sender: FDA-Public Use
  Company Number: GB-MHRA-MED-202211201932500610-JGDSN

PATIENT

DRUGS (1)
  1. FINASTERIDE [Suspect]
     Active Substance: FINASTERIDE
     Indication: Alopecia
     Dosage: 1 MILLIGRAM
     Route: 065
     Dates: start: 20220927, end: 20220928

REACTIONS (3)
  - Erectile dysfunction [Recovered/Resolved]
  - Loss of libido [Recovered/Resolved]
  - Anxiety [Recovered/Resolved]
